FAERS Safety Report 23507946 (Version 2)
Quarter: 2024Q1

REPORT INFORMATION
  Report Type: Spontaneous
  Country: GB (occurrence: GB)
  Receive Date: 20240209
  Receipt Date: 20240216
  Transmission Date: 20240410
  Serious: Yes (Disabling, Other)
  Sender: FDA-Public Use
  Company Number: None

PATIENT
  Age: 8 Year
  Sex: Female
  Weight: 35 kg

DRUGS (2)
  1. MOMETASONE FUROATE [Suspect]
     Active Substance: MOMETASONE FUROATE
     Indication: Eczema
     Dosage: UNK
     Dates: start: 2016, end: 20230530
  2. CHLORPHENIRAMINE MALEATE [Concomitant]
     Active Substance: CHLORPHENIRAMINE MALEATE
     Indication: Adverse drug reaction
     Dosage: UNK
     Dates: start: 202305

REACTIONS (21)
  - Medication error [Unknown]
  - Alopecia [Recovering/Resolving]
  - Madarosis [Not Recovered/Not Resolved]
  - Skin hypopigmentation [Recovering/Resolving]
  - Insomnia [Recovering/Resolving]
  - Skin exfoliation [Recovering/Resolving]
  - Skin atrophy [Not Recovered/Not Resolved]
  - Skin weeping [Recovered/Resolved with Sequelae]
  - Skin odour abnormal [Recovering/Resolving]
  - Muscle spasms [Recovered/Resolved]
  - Temperature intolerance [Recovered/Resolved]
  - Chills [Recovered/Resolved]
  - Skin burning sensation [Recovering/Resolving]
  - Pruritus [Not Recovered/Not Resolved]
  - Erythema [Recovering/Resolving]
  - Erythema [Recovering/Resolving]
  - Weight decreased [Not Recovered/Not Resolved]
  - Asthenia [Recovering/Resolving]
  - Lymphadenopathy [Recovering/Resolving]
  - Skin wrinkling [Not Recovered/Not Resolved]
  - Eosinophil count increased [Unknown]

NARRATIVE: CASE EVENT DATE: 20230501
